FAERS Safety Report 9188176 (Version 3)
Quarter: 2014Q2

REPORT INFORMATION
  Report Type: Spontaneous
  Country: US (occurrence: US)
  Receive Date: 20121126
  Receipt Date: 20140604
  Transmission Date: 20141212
  Serious: Yes (Death, Hospitalization, Other)
  Sender: FDA-Public Use
  Company Number: US-RB-046964-12

PATIENT
  Age: 28 Year
  Sex: Male

DRUGS (1)
  1. SUBOXONE UNSPECIFIED [Suspect]
     Indication: DRUG DEPENDENCE
     Dosage: DOSING DETAILS UNKNOWN
     Route: 065
     Dates: start: 2011

REACTIONS (4)
  - Drug withdrawal syndrome [Recovered/Resolved]
  - Paranoia [Recovered/Resolved]
  - Suicidal ideation [Fatal]
  - Completed suicide [Fatal]
